FAERS Safety Report 14321886 (Version 1)
Quarter: 2017Q4

REPORT INFORMATION
  Report Type: Spontaneous
  Country: JP (occurrence: JP)
  Receive Date: 20171225
  Receipt Date: 20171225
  Transmission Date: 20180321
  Serious: Yes (Hospitalization, Other)
  Sender: FDA-Public Use
  Company Number: JP-ROCHE-1989278

PATIENT
  Age: 71 Year
  Sex: Female
  Weight: 44 kg

DRUGS (7)
  1. LEVOFLOXACIN HEMIHYDRATE [Suspect]
     Active Substance: LEVOFLOXACIN
     Indication: PRODUCT USED FOR UNKNOWN INDICATION
     Dosage: DOSAGE IS UNCERTAIN.
     Route: 065
     Dates: start: 201709, end: 201709
  2. DECADRON [Concomitant]
     Active Substance: DEXAMETHASONE
     Dosage: THE FRACTIONATION DOSE FREQUENCY IS UNCERTAIN. ?DOSE INTERVAL UNCERTAINTY
     Route: 048
     Dates: start: 20170714, end: 20170715
  3. AVASTIN [Suspect]
     Active Substance: BEVACIZUMAB
     Indication: COLON CANCER
     Dosage: DOSAGE IS UNCERTAIN.
     Route: 041
     Dates: start: 20170713, end: 20170726
  4. OXALIPLATIN. [Suspect]
     Active Substance: OXALIPLATIN
     Indication: COLON CANCER
     Dosage: DOSAGE IS UNCERTAIN.
     Route: 041
     Dates: start: 20170713, end: 20170726
  5. XELODA [Suspect]
     Active Substance: CAPECITABINE
     Indication: COLON CANCER
     Dosage: DOSAGE IS UNCERTAIN.
     Route: 048
     Dates: start: 20170713, end: 20170726
  6. MAGMITT [Concomitant]
     Active Substance: MAGNESIUM OXIDE
     Dosage: SUITABLE FOR USE
     Route: 048
     Dates: start: 20170714, end: 2017
  7. SENNOSIDE [Concomitant]
     Active Substance: SENNOSIDES
     Dosage: SUITABLE FOR USE
     Route: 048
     Dates: start: 20170714, end: 2017

REACTIONS (3)
  - Liver disorder [Recovered/Resolved]
  - Fixed eruption [Recovered/Resolved]
  - Cytomegalovirus enterocolitis [Recovering/Resolving]

NARRATIVE: CASE EVENT DATE: 20170726
